FAERS Safety Report 4392734-2 (Version None)
Quarter: 2004Q3

REPORT INFORMATION
  Report Type: 
  Country: None (occurrence: None)
  Receive Date: 20040702
  Receipt Date: 20040624
  Transmission Date: 20050211
  Serious: Yes (Other)
  Sender: FDA-Public Use
  Company Number: 028-20785-04060654

PATIENT
  Age: 5 Year
  Sex: Male

DRUGS (2)
  1. THALOMID [Suspect]
     Indication: JUVENILE ARTHRITIS
     Dosage: 50 MG, DAILY, ORAL
     Route: 048
     Dates: start: 20040101
  2. PREDNISONE TAB [Concomitant]

REACTIONS (1)
  - HISTIOCYTOSIS HAEMATOPHAGIC [None]
